FAERS Safety Report 16973308 (Version 1)
Quarter: 2019Q4

REPORT INFORMATION
  Report Type: Spontaneous
  Country: US (occurrence: US)
  Receive Date: 20191030
  Receipt Date: 20191030
  Transmission Date: 20200122
  Serious: No
  Sender: FDA-Public Use
  Company Number: US-TEVA-2019-US-1129087

PATIENT
  Sex: Male

DRUGS (1)
  1. BUPRENORPHINE SUBLINGUAL TABLETS [Suspect]
     Active Substance: BUPRENORPHINE
     Indication: PRODUCT USED FOR UNKNOWN INDICATION
     Dosage: DOSE STRENGTH:2
     Route: 065

REACTIONS (1)
  - Drug intolerance [Unknown]
